FAERS Safety Report 4352544-9 (Version None)
Quarter: 2004Q2

REPORT INFORMATION
  Report Type: 
  Country: None (occurrence: None)
  Receive Date: 20040503
  Receipt Date: 20040503
  Transmission Date: 20050107
  Serious: Yes (Death)
  Sender: FDA-Public Use
  Company Number: None

PATIENT
  Age: 70 Year
  Sex: Male
  Weight: 100.6985 kg

DRUGS (12)
  1. POLYGAM [Suspect]
     Indication: MYOSITIS
     Dosage: 75 GM 1 TIME DOS IV
     Route: 042
     Dates: start: 20040425, end: 20040429
  2. POLYGAM [Suspect]
  3. ACCUPRIL [Concomitant]
  4. BENICAR [Concomitant]
  5. STARLIX [Concomitant]
  6. METFORMIN HCL [Concomitant]
  7. LIPITOR [Concomitant]
  8. NIASPAN [Concomitant]
  9. AMITRIPTYLINE HCL [Concomitant]
  10. FISH OIL [Concomitant]
  11. NEURONTIN [Concomitant]
  12. MULTIVITAMIN [Concomitant]

REACTIONS (4)
  - HYPERHIDROSIS [None]
  - LOSS OF CONSCIOUSNESS [None]
  - PULSE ABSENT [None]
  - RESPIRATORY ARREST [None]
